FAERS Safety Report 23056735 (Version 6)
Quarter: 2024Q3

REPORT INFORMATION
  Report Type: Report from Study
  Country: JP (occurrence: JP)
  Receive Date: 20231012
  Receipt Date: 20240925
  Transmission Date: 20241016
  Serious: Yes (Hospitalization)
  Sender: EMD SERONO INC
  Company Number: JP-Merck Healthcare KGaA-2023479845

PATIENT
  Age: 63 Year
  Sex: Male
  Weight: 57 kg

DRUGS (4)
  1. BAVENCIO [Suspect]
     Active Substance: AVELUMAB
     Indication: Bladder cancer recurrent
     Route: 041
     Dates: start: 20220630, end: 20230907
  2. ALENDRONATE [Concomitant]
     Active Substance: ALENDRONATE SODIUM
     Indication: Colitis ulcerative
     Dosage: DOSE NOT CHANGED
     Route: 048
     Dates: start: 201812
  3. MIYA-BM [Concomitant]
     Active Substance: CLOSTRIDIUM BUTYRICUM SPORES STRAIN M-55
     Indication: Colitis ulcerative
     Dosage: DOSE NOT CHANGED. FREQUENCY: AFTER EACH MEAL
     Route: 048
     Dates: start: 201812
  4. ASACOL [Concomitant]
     Active Substance: MESALAMINE
     Indication: Colitis ulcerative
     Dosage: DOSE NOT CHANGED. FREQUENCY: AFTER EACH MEAL
     Route: 048
     Dates: start: 201812

REACTIONS (5)
  - Cytokine release syndrome [Recovered/Resolved]
  - Oesophagitis [Recovered/Resolved]
  - Neutropenia [Recovered/Resolved]
  - Anaemia [Recovered/Resolved]
  - Rash [Recovering/Resolving]

NARRATIVE: CASE EVENT DATE: 20230921
